FAERS Safety Report 11683335 (Version 1)
Quarter: 2015Q4

REPORT INFORMATION
  Report Type: Spontaneous
  Country: PT (occurrence: PT)
  Receive Date: 20151029
  Receipt Date: 20151029
  Transmission Date: 20160304
  Serious: Yes (Other)
  Sender: FDA-Public Use
  Company Number: PT-FRESENIUS KABI-FK201505450

PATIENT
  Age: 57 Year
  Sex: Male

DRUGS (3)
  1. DEXAMETHASONE INJECTION (MANUFACTURER UNKNOWN) [Suspect]
     Active Substance: DEXAMETHASONE
     Indication: PLASMACYTOMA
     Route: 065
  2. BORTEZOMIB [Suspect]
     Active Substance: BORTEZOMIB
     Indication: PLASMACYTOMA
  3. THALIDOMIDE (MANUFACTURER UNKNOWN) (THALIDOMIDE) (THALIDOMIDE) [Suspect]
     Active Substance: THALIDOMIDE
     Indication: PLASMACYTOMA
     Route: 065

REACTIONS (3)
  - Hepatitis B [Unknown]
  - Plasma cell myeloma [None]
  - Stem cell transplant [None]
